FAERS Safety Report 14565540 (Version 1)
Quarter: 2018Q1

REPORT INFORMATION
  Report Type: Spontaneous
  Country: US (occurrence: US)
  Receive Date: 20180223
  Receipt Date: 20180223
  Transmission Date: 20180509
  Serious: No
  Sender: FDA-Public Use
  Company Number: US-TEVA-798236USA

PATIENT
  Age: 43 Year
  Sex: Male

DRUGS (1)
  1. FLUOCINONIDE, 0.05 % [Suspect]
     Active Substance: FLUOCINONIDE
     Indication: RASH

REACTIONS (2)
  - Drug ineffective [Unknown]
  - Product physical issue [Unknown]

NARRATIVE: CASE EVENT DATE: 20170808
